FAERS Safety Report 6969993-2 (Version None)
Quarter: 2010Q3

REPORT INFORMATION
  Report Type: 
  Country: None (occurrence: None)
  Receive Date: 20100908
  Receipt Date: 20100830
  Transmission Date: 20110219
  Serious: Yes (Death, Hospitalization, Other)
  Sender: FDA-Public Use
  Company Number: GR-ELI_LILLY_AND_COMPANY-GR201009000103

PATIENT
  Age: 57 Year
  Sex: Male

DRUGS (4)
  1. PEMETREXED [Suspect]
     Indication: NON-SMALL CELL LUNG CANCER
     Dosage: 500 MG/M2, D1 EVERY 21 DAYS
     Route: 042
  2. VITAMIN B-12 [Concomitant]
     Dosage: 1 G, EVERY 60 DAYS
     Route: 030
  3. FOLIC ACID [Concomitant]
     Dosage: 350 MG, DAILY (1/D)
     Route: 048
  4. DEXAMETHASONE [Concomitant]
     Dosage: 4 MG, BID FOR 3 DAYS

REACTIONS (4)
  - MALIGNANT NEOPLASM PROGRESSION [None]
  - NEPHROGENIC DIABETES INSIPIDUS [None]
  - RENAL FAILURE CHRONIC [None]
  - TUBULOINTERSTITIAL NEPHRITIS [None]
